FAERS Safety Report 16040530 (Version 1)
Quarter: 2019Q1

REPORT INFORMATION
  Report Type: Spontaneous
  Country: US (occurrence: US)
  Receive Date: 20190206
  Receipt Date: 20190206
  Transmission Date: 20190418
  Serious: No
  Sender: FDA-Public Use
  Company Number: None

PATIENT
  Age: 68 Year
  Sex: Male
  Weight: 107.95 kg

DRUGS (1)
  1. DOCETAXEL. [Suspect]
     Active Substance: DOCETAXEL
     Indication: SQUAMOUS CELL CARCINOMA OF THE ORAL CAVITY
     Route: 042
     Dates: start: 20190108, end: 20190108

REACTIONS (6)
  - Hypertension [None]
  - Palmar-plantar erythrodysaesthesia syndrome [None]
  - Urticaria [None]
  - Pruritus [None]
  - Rash [None]
  - Drug hypersensitivity [None]
